FAERS Safety Report 5507544-X (Version None)
Quarter: 2007Q4

REPORT INFORMATION
  Report Type: 
  Country: None (occurrence: None)
  Receive Date: 20071105
  Receipt Date: 20071105
  Transmission Date: 20080405
  Serious: Yes (Other)
  Sender: FDA-Public Use
  Company Number: None

PATIENT
  Age: 26 Year
  Sex: Female
  Weight: 48.9885 kg

DRUGS (3)
  1. TYLENOL (CAPLET) [Suspect]
     Indication: HEADACHE
     Dosage: 650MG  ONCE  PO
     Route: 048
     Dates: start: 20071031, end: 20071031
  2. TYLENOL (CAPLET) [Suspect]
     Indication: MUSCLE SPASMS
     Dosage: 650MG  ONCE  PO
     Route: 048
     Dates: start: 20071031, end: 20071031
  3. TYLENOL (CAPLET) [Suspect]
     Indication: NASOPHARYNGITIS
     Dosage: 650MG  ONCE  PO
     Route: 048
     Dates: start: 20071031, end: 20071031

REACTIONS (5)
  - COUGH [None]
  - INFLUENZA LIKE ILLNESS [None]
  - PHARYNGOLARYNGEAL PAIN [None]
  - RHINORRHOEA [None]
  - THROAT IRRITATION [None]
